FAERS Safety Report 14941130 (Version 1)
Quarter: 2018Q2

REPORT INFORMATION
  Report Type: Spontaneous
  Country: JP (occurrence: JP)
  Receive Date: 20180525
  Receipt Date: 20180525
  Transmission Date: 20180711
  Serious: Yes (Other)
  Sender: FDA-Public Use
  Company Number: JP-PFIZER INC-2018210653

PATIENT
  Age: 66 Year
  Sex: Male

DRUGS (1)
  1. SUNITINIB MALATE. [Suspect]
     Active Substance: SUNITINIB MALATE
     Indication: GASTROINTESTINAL STROMAL TUMOUR
     Dosage: UNK UNK, CYCLIC (SIXTH CYCLE)

REACTIONS (4)
  - Hypertension [Recovering/Resolving]
  - Aortic dissection [Unknown]
  - Aortic arteriosclerosis [Unknown]
  - Vascular fragility [Unknown]
